FAERS Safety Report 4640645-7 (Version None)
Quarter: 2005Q2

REPORT INFORMATION
  Report Type: 
  Country: None (occurrence: None)
  Receive Date: 20050419
  Receipt Date: 20050406
  Transmission Date: 20051028
  Serious: Yes (Death, Life-Threatening)
  Sender: FDA-Public Use
  Company Number: 2005056050

PATIENT
  Age: 78 Year
  Sex: Female

DRUGS (1)
  1. GENOTROPIN [Suspect]
     Indication: ILL-DEFINED DISORDER
     Dosage: (OD INTERVAL:  EVERY DAY), INTRAMUSCULAR
     Route: 030
     Dates: start: 20050201, end: 20050316

REACTIONS (1)
  - DIABETIC COMPLICATION [None]
